FAERS Safety Report 5062177-7 (Version None)
Quarter: 2006Q3

REPORT INFORMATION
  Report Type: 
  Country: None (occurrence: None)
  Receive Date: 20060721
  Receipt Date: 20060712
  Transmission Date: 20061208
  Serious: Yes (Death)
  Sender: FDA-Public Use
  Company Number: A-CH2006-12520

PATIENT
  Age: 52 Year
  Sex: Male
  Weight: 65 kg

DRUGS (16)
  1. TRACLEER [Suspect]
     Indication: PULMONARY HYPERTENSION
     Dosage: SEE IMAGE
     Route: 048
     Dates: start: 20051121, end: 20051225
  2. TRACLEER [Suspect]
     Indication: PULMONARY HYPERTENSION
     Dosage: SEE IMAGE
     Route: 048
     Dates: start: 20051226, end: 20060619
  3. ACENOCOUMAROL (ACENOCOUMAROL) [Concomitant]
  4. CHLORTHALIDONE [Concomitant]
  5. DORMONOCT (LOPRAZOLAM MESILATE) [Concomitant]
  6. ACETYLCYSTEINE [Concomitant]
  7. CORDARONE [Concomitant]
  8. CALCIUM (CALCIUM) [Concomitant]
  9. SPIRIVA [Concomitant]
  10. FLUTICASONE PROPIONATE [Concomitant]
  11. LASIX [Concomitant]
  12. DOBUTAMINE (DOBUTAMINE) [Concomitant]
  13. DOPAMINE HCL [Concomitant]
  14. ALLOPURINOL [Concomitant]
  15. ERYTHRO (ERYTHROMYCIN ESTOLATE) [Concomitant]
  16. ALLOPURINOL [Concomitant]

REACTIONS (2)
  - CONDITION AGGRAVATED [None]
  - DISEASE PROGRESSION [None]
